FAERS Safety Report 24130770 (Version 1)
Quarter: 2024Q3

REPORT INFORMATION
  Report Type: Spontaneous
  Country: US (occurrence: US)
  Receive Date: 20240724
  Receipt Date: 20240724
  Transmission Date: 20241017
  Serious: Yes (Hospitalization)
  Sender: AMGEN
  Company Number: US-AMGEN-USASP2024144980

PATIENT
  Sex: Female

DRUGS (1)
  1. SOTORASIB [Suspect]
     Active Substance: SOTORASIB
     Indication: Lung cancer metastatic
     Dosage: 960 MILLIGRAM, QD
     Route: 065

REACTIONS (2)
  - Acute hepatic failure [Recovering/Resolving]
  - Dyspnoea [Recovering/Resolving]
